FAERS Safety Report 4710173-9 (Version None)
Quarter: 2005Q3

REPORT INFORMATION
  Report Type: 
  Country: None (occurrence: None)
  Receive Date: 20050707
  Receipt Date: 20050625
  Transmission Date: 20060218
  Serious: Yes (Other)
  Sender: FDA-Public Use
  Company Number: 2005080812

PATIENT
  Age: 71 Year
  Sex: Female
  Weight: 115.2136 kg

DRUGS (7)
  1. NEURONTIN [Suspect]
     Indication: ARTHRALGIA
     Dosage: 2400 MG (200 MG, 3 IN 1 D) ORAL
     Route: 048
  2. CELEBREX [Suspect]
     Indication: ARTHRALGIA
     Dosage: 400 MG (200 MG, 2 IN 1 D) ORAL
     Route: 048
     Dates: end: 20040101
  3. LANTUS [Concomitant]
  4. HUMALOG [Concomitant]
  5. HUMULIN R [Concomitant]
  6. NORVASC [Concomitant]
  7. SINEQUAN [Concomitant]

REACTIONS (2)
  - DRUG INEFFECTIVE [None]
  - KNEE ARTHROPLASTY [None]
